FAERS Safety Report 6268170-0 (Version None)
Quarter: 2009Q3

REPORT INFORMATION
  Report Type: 
  Country: None (occurrence: None)
  Receive Date: 20090714
  Receipt Date: 20090714
  Transmission Date: 20100115
  Serious: Yes (Hospitalization)
  Sender: FDA-Public Use
  Company Number: None

PATIENT
  Age: 80 Year
  Sex: Male

DRUGS (2)
  1. LISINOPRIL [Suspect]
     Indication: HYPERTENSION
     Dates: start: 20090501, end: 20090519
  2. METOPROLOL TARTRATE [Suspect]
     Dates: start: 20090501, end: 20090519

REACTIONS (8)
  - ACUTE CORONARY SYNDROME [None]
  - DIZZINESS [None]
  - FAECES DISCOLOURED [None]
  - FATIGUE [None]
  - HEAD INJURY [None]
  - HYPOTENSION [None]
  - POLYMEDICATION [None]
  - SYNCOPE [None]
